FAERS Safety Report 8954744 (Version 2)
Quarter: 2013Q1

REPORT INFORMATION
  Report Type: Spontaneous
  Country: US (occurrence: US)
  Receive Date: 20121207
  Receipt Date: 20130325
  Transmission Date: 20140127
  Serious: Yes (Death, Hospitalization)
  Sender: FDA-Public Use
  Company Number: US-GLAXOSMITHKLINE-A1003554A

PATIENT
  Age: 76 Year
  Sex: Male

DRUGS (4)
  1. VOTRIENT [Suspect]
     Indication: RENAL CELL CARCINOMA
     Dosage: 800MG PER DAY
     Route: 048
     Dates: start: 20121027, end: 20121102
  2. RADIATION THERAPY [Suspect]
     Route: 065
  3. DILAUDID [Concomitant]
  4. HEART MEDICATION [Concomitant]

REACTIONS (5)
  - Renal cell carcinoma [Fatal]
  - Metastases to bone [Unknown]
  - Drug hypersensitivity [Unknown]
  - Hyponatraemia [Unknown]
  - Disease progression [Fatal]
